FAERS Safety Report 16205944 (Version 1)
Quarter: 2019Q2

REPORT INFORMATION
  Report Type: Spontaneous
  Country: TR (occurrence: TR)
  Receive Date: 20190417
  Receipt Date: 20190417
  Transmission Date: 20190711
  Serious: Yes (Hospitalization, Other)
  Sender: FDA-Public Use
  Company Number: TR-AMGEN-TURSP2019059081

PATIENT
  Age: 35 Year
  Sex: Female
  Weight: 100 kg

DRUGS (8)
  1. EUTHYROX [Concomitant]
     Active Substance: LEVOTHYROXINE SODIUM
     Dosage: 150 MILLIGRAM, QD
  2. SALAZOPYRIN [Concomitant]
     Active Substance: SULFASALAZINE
     Dosage: 500 MILLIGRAM, QID
  3. ENBREL [Suspect]
     Active Substance: ETANERCEPT
     Indication: ANKYLOSING SPONDYLITIS
     Dosage: 50 MILLIGRAM, QWK
     Route: 058
     Dates: start: 20180705
  4. COLCHICUM DISPERT [Concomitant]
     Dosage: 0.5 MILLIGRAM, QID
  5. VITAMIN D [VITAMIN D NOS] [Concomitant]
     Active Substance: VITAMIN D NOS
     Dosage: 25 DROP, QWK
  6. DODEX [Concomitant]
     Active Substance: CYANOCOBALAMIN
     Dosage: UNK UNK, QMO
  7. VASOXEN PLUS [Concomitant]
     Dosage: 1 DOSAGE FORM, QD
  8. LANSOR [Concomitant]
     Active Substance: LANSOPRAZOLE
     Dosage: 1 DOSAGE FORM, QD

REACTIONS (5)
  - Choking sensation [Unknown]
  - Hypoaesthesia [Unknown]
  - Myasthenia gravis [Unknown]
  - Dysphagia [Recovered/Resolved]
  - Muscle contractions involuntary [Unknown]

NARRATIVE: CASE EVENT DATE: 20190128
